FAERS Safety Report 5413213-7 (Version None)
Quarter: 2007Q3

REPORT INFORMATION
  Report Type: 
  Country: None (occurrence: None)
  Receive Date: 20070814
  Receipt Date: 20070806
  Transmission Date: 20080115
  Serious: Yes (Other)
  Sender: FDA-Public Use
  Company Number: PHBS2007BR13113

PATIENT
  Age: 25 Year
  Sex: Female
  Weight: 60 kg

DRUGS (2)
  1. METHERGINE [Suspect]
     Indication: MENORRHAGIA
     Dosage: 0.125 MG, Q8H
     Route: 048
     Dates: start: 20070804
  2. GALENIC /ESTRADIOL/NORETHISTERONE/ [Concomitant]
     Indication: CONTRACEPTION
     Dates: start: 20070419

REACTIONS (7)
  - ABDOMINAL DISCOMFORT [None]
  - ABDOMINAL PAIN [None]
  - APATHY [None]
  - ASTHENIA [None]
  - DEAFNESS BILATERAL [None]
  - DRUG INEFFECTIVE [None]
  - MALAISE [None]
